FAERS Safety Report 15455522 (Version 1)
Quarter: 2018Q4

REPORT INFORMATION
  Report Type: Spontaneous
  Country: US (occurrence: US)
  Receive Date: 20181002
  Receipt Date: 20181002
  Transmission Date: 20190204
  Serious: Yes (Hospitalization, Other)
  Sender: FDA-Public Use
  Company Number: US-GLAXOSMITHKLINE-A0521201A

PATIENT
  Sex: Female

DRUGS (2)
  1. VALTREX [Suspect]
     Active Substance: VALACYCLOVIR HYDROCHLORIDE
     Indication: LABYRINTHITIS
     Dosage: 1000 MG, UNK
     Route: 048
     Dates: start: 19981111, end: 19981114
  2. VALTREX [Suspect]
     Active Substance: VALACYCLOVIR HYDROCHLORIDE
     Dosage: UNK
     Dates: start: 2007, end: 2007

REACTIONS (13)
  - Appendicectomy [Recovered/Resolved]
  - Abdominal pain [Unknown]
  - Medication error [Unknown]
  - Anxiety [Unknown]
  - Keloid scar [Unknown]
  - Nonspecific reaction [Recovered/Resolved]
  - Haematoma [Recovered/Resolved]
  - Dizziness [Unknown]
  - Off label use [Recovered/Resolved]
  - Pyrexia [Recovered/Resolved]
  - Product use in unapproved indication [Recovered/Resolved]
  - Abdominal pain lower [Unknown]
  - Pain [Unknown]

NARRATIVE: CASE EVENT DATE: 2007
